FAERS Safety Report 9825241 (Version 1)
Quarter: 2013Q4

REPORT INFORMATION
  Report Type: Spontaneous
  Country: US (occurrence: None)
  Receive Date: 20131028
  Receipt Date: 20131028
  Transmission Date: 20140711
  Serious: Yes (Other)
  Sender: FDA-Public Use
  Company Number: 2013US002450

PATIENT
  Age: 69 Year
  Sex: Female
  Weight: 92 kg

DRUGS (6)
  1. ICLUSIG [Suspect]
     Indication: CHRONIC MYELOID LEUKAEMIA
     Route: 048
     Dates: start: 20130821
  2. VICTOZA (LIRAGLUTIDE) [Concomitant]
  3. GLIPIZIDE (GLIPIZIDE) [Concomitant]
  4. FENOFIBRATE (FENOFIBRATE) (FENOFIBRATE) [Concomitant]
  5. PRAVASTATIN (PRAVASTATIN SODIUM) [Concomitant]
  6. NORVASC (AMLODIPINE BESILATE) [Concomitant]

REACTIONS (1)
  - Fatigue [None]
